FAERS Safety Report 4568381-6 (Version None)
Quarter: 2005Q1

REPORT INFORMATION
  Report Type: 
  Country: None (occurrence: None)
  Receive Date: 20050131
  Receipt Date: 20050114
  Transmission Date: 20050727
  Serious: Yes (Other)
  Sender: FDA-Public Use
  Company Number: 8008131

PATIENT
  Age: 8 Year
  Sex: Male
  Weight: 35.5 kg

DRUGS (6)
  1. KEPPRA [Suspect]
     Indication: CONVULSION
     Dosage: 250 MG 1/D PO
     Route: 048
     Dates: start: 20041027, end: 20041108
  2. DIVALPROEX SODIUM [Concomitant]
  3. DIVALPROEX SODIUM [Concomitant]
  4. CLOBAZAM [Concomitant]
  5. CARNITINE [Concomitant]
  6. HUMAN INSULIN [Concomitant]

REACTIONS (5)
  - ABNORMAL BEHAVIOUR [None]
  - AGGRESSION [None]
  - BELLIGERENCE [None]
  - FEELING ABNORMAL [None]
  - HALLUCINATION, AUDITORY [None]
